FAERS Safety Report 4995936-7 (Version None)
Quarter: 2006Q2

REPORT INFORMATION
  Report Type: 
  Country: None (occurrence: None)
  Receive Date: 20060504
  Receipt Date: 20060427
  Transmission Date: 20061013
  Serious: Yes (Life-Threatening, Hospitalization, Disabling)
  Sender: FDA-Public Use
  Company Number: HQWYE050728FEB06

PATIENT
  Age: 41 Year
  Sex: Female

DRUGS (8)
  1. RAPAMUNE [Suspect]
     Indication: PROPHYLAXIS AGAINST TRANSPLANT REJECTION
     Dosage: 10 + 5 + 4 MG 1X PER 1 DAY ORAL - SEE IMAGE
     Route: 048
     Dates: start: 20060217, end: 20060312
  2. RAPAMUNE [Suspect]
     Indication: PROPHYLAXIS AGAINST TRANSPLANT REJECTION
     Dosage: 10 + 5 + 4 MG 1X PER 1 DAY ORAL - SEE IMAGE
     Route: 048
     Dates: start: 20060323, end: 20060406
  3. RAPAMUNE [Suspect]
     Indication: PROPHYLAXIS AGAINST TRANSPLANT REJECTION
     Dosage: 10 + 5 + 4 MG 1X PER 1 DAY ORAL - SEE IMAGE
     Route: 048
     Dates: start: 20060407, end: 20060420
  4. MYCOPHENOLATE MOFETIL [Concomitant]
  5. OMEPRAZOLE [Concomitant]
  6. AMIKACIN [Concomitant]
  7. CEFTAZIDIME (CEFTAZIDIME) [Concomitant]
  8. CLONAZEPAM [Concomitant]

REACTIONS (12)
  - BLOOD CREATINE PHOSPHOKINASE INCREASED [None]
  - COMPLICATIONS OF TRANSPLANTED KIDNEY [None]
  - DRUG INEFFECTIVE [None]
  - GRAFT COMPLICATION [None]
  - GRAFT THROMBOSIS [None]
  - HAEMATOCRIT DECREASED [None]
  - KIDNEY TRANSPLANT REJECTION [None]
  - LEG AMPUTATION [None]
  - PERIPHERAL ISCHAEMIA [None]
  - PYREXIA [None]
  - RENAL TUBULAR NECROSIS [None]
  - SEPSIS [None]
